FAERS Safety Report 13906234 (Version 1)
Quarter: 2017Q3

REPORT INFORMATION
  Report Type: Spontaneous
  Country: US (occurrence: US)
  Receive Date: 20170825
  Receipt Date: 20170825
  Transmission Date: 20171127
  Serious: No
  Sender: FDA-Public Use
  Company Number: US-MYLANLABS-2016M1044649

PATIENT
  Age: 86 Year
  Sex: Female
  Weight: 49.89 kg

DRUGS (1)
  1. TRIFLUOPERAZINE HYDROCHLORIDE TABLETS, USP [Suspect]
     Active Substance: TRIFLUOPERAZINE HYDROCHLORIDE
     Indication: NERVOUSNESS
     Dosage: 2 MG, QD
     Route: 048
     Dates: start: 1964, end: 20161012

REACTIONS (11)
  - Asthenia [Not Recovered/Not Resolved]
  - Lip swelling [Not Recovered/Not Resolved]
  - Nausea [Not Recovered/Not Resolved]
  - Withdrawal syndrome [Not Recovered/Not Resolved]
  - Dry skin [Not Recovered/Not Resolved]
  - Tooth disorder [Not Recovered/Not Resolved]
  - Cold sweat [Unknown]
  - Feeling abnormal [None]
  - Lip dry [Not Recovered/Not Resolved]
  - Abdominal discomfort [None]
  - Hot flush [None]

NARRATIVE: CASE EVENT DATE: 201609
